FAERS Safety Report 19495944 (Version 2)
Quarter: 2021Q3

REPORT INFORMATION
  Report Type: Spontaneous
  Country: DE (occurrence: DE)
  Receive Date: 20210706
  Receipt Date: 20210818
  Transmission Date: 20211014
  Serious: Yes (Hospitalization)
  Sender: FDA-Public Use
  Company Number: DE-TEVA-2021-DE-1929514

PATIENT
  Age: 55 Year
  Sex: Female

DRUGS (4)
  1. METRONIDAZOL [Suspect]
     Active Substance: METRONIDAZOLE
     Dosage: 1200 MILLIGRAM DAILY; 1?1?1?0
     Route: 048
  2. COMIRNATY [Concomitant]
     Active Substance: TOZINAMERAN
     Route: 030
  3. CANDESARTAN. [Concomitant]
     Active Substance: CANDESARTAN
     Dosage: .5 DOSAGE FORMS DAILY; 8 MG, 0.5?0?0?0
     Route: 048
  4. AMOXICILLIN. [Suspect]
     Active Substance: AMOXICILLIN
     Dosage: 1500 MILLIGRAM DAILY; 1?1?1?0
     Route: 048

REACTIONS (1)
  - Seizure [Recovering/Resolving]

NARRATIVE: CASE EVENT DATE: 20210409
